FAERS Safety Report 8592837-2 (Version None)
Quarter: 2012Q3

REPORT INFORMATION
  Report Type: 
  Country: None (occurrence: None)
  Receive Date: 20120814
  Receipt Date: 20120731
  Transmission Date: 20120928
  Serious: Yes (Hospitalization)
  Sender: FDA-Public Use
  Company Number: FR-ROCHE-1095714

PATIENT
  Age: 52 Year
  Sex: Male

DRUGS (3)
  1. BUPRENORPHINE [Concomitant]
  2. VALIUM [Suspect]
     Indication: PRODUCT USED FOR UNKNOWN INDICATION
     Dates: start: 20120301, end: 20120308
  3. METHADONE HYDROCHLORIDE [Concomitant]

REACTIONS (5)
  - BRONCHOPNEUMOPATHY [None]
  - DRUG LEVEL INCREASED [None]
  - COMA [None]
  - MIOSIS [None]
  - TOXICITY TO VARIOUS AGENTS [None]
